FAERS Safety Report 10057181 (Version 1)
Quarter: 2014Q2

REPORT INFORMATION
  Report Type: Spontaneous
  Country: SE (occurrence: SE)
  Receive Date: 20140403
  Receipt Date: 20140403
  Transmission Date: 20141212
  Serious: Yes (Other)
  Sender: FDA-Public Use
  Company Number: SE-BAYER-2014-044580

PATIENT
  Age: 33 Year
  Sex: Female
  Weight: 63 kg

DRUGS (1)
  1. CANESTEN VAGINAL TABLET [Suspect]
     Dosage: UNK

REACTIONS (1)
  - Abortion spontaneous [Recovered/Resolved with Sequelae]
